FAERS Safety Report 26151186 (Version 1)
Quarter: 2025Q4

REPORT INFORMATION
  Report Type: Report from Study
  Country: US (occurrence: US)
  Receive Date: 20251212
  Receipt Date: 20251212
  Transmission Date: 20260118
  Serious: No
  Sender: PFIZER
  Company Number: US-PFIZER INC-202500236809

PATIENT
  Age: 17 Year
  Sex: Male

DRUGS (4)
  1. GENOTROPIN [Suspect]
     Active Substance: SOMATROPIN
     Dosage: ALTERNATE 2.2MG WITH 2.4MG 6 DAYS A WEEK
     Dates: start: 2023
  2. GENOTROPIN [Suspect]
     Active Substance: SOMATROPIN
     Dosage: ALTERNATE 2.2MG WITH 2.4MG 6 DAYS A WEEK
     Dates: start: 2023
  3. GENOTROPIN [Suspect]
     Active Substance: SOMATROPIN
     Dosage: TAKES 3.0 MILLIGRAMS AND NEXT DAY 3.2
  4. GENOTROPIN [Suspect]
     Active Substance: SOMATROPIN
     Dosage: TAKES 3.0 MILLIGRAMS AND NEXT DAY 3.2

REACTIONS (2)
  - Device information output issue [Unknown]
  - Drug dose omission by device [Unknown]
